FAERS Safety Report 14709850 (Version 1)
Quarter: 2018Q2

REPORT INFORMATION
  Report Type: Spontaneous
  Country: US (occurrence: US)
  Receive Date: 20180403
  Receipt Date: 20180403
  Transmission Date: 20180711
  Serious: No
  Sender: FDA-Public Use
  Company Number: US-TAKEDA-2018TUS007956

PATIENT
  Sex: Female
  Weight: 74.83 kg

DRUGS (6)
  1. VYVANSE [Concomitant]
     Active Substance: LISDEXAMFETAMINE DIMESYLATE
     Dosage: UNK
     Route: 048
  2. TRINTELLIX [Suspect]
     Active Substance: VORTIOXETINE HYDROBROMIDE
     Dosage: UNK, QD
     Route: 048
     Dates: start: 2018
  3. MAXIDENE [Concomitant]
     Active Substance: PIROXICAM
     Dosage: UNK
     Route: 048
  4. TRINTELLIX [Suspect]
     Active Substance: VORTIOXETINE HYDROBROMIDE
     Indication: DEPRESSION
     Dosage: 10 MG, QD
     Route: 048
     Dates: start: 201802, end: 2018
  5. NORCO [Concomitant]
     Active Substance: ACETAMINOPHEN\HYDROCODONE BITARTRATE
     Indication: BACK DISORDER
     Dosage: UNK
     Route: 048
  6. PROTONIX                           /00661201/ [Concomitant]
     Active Substance: OMEPRAZOLE
     Dosage: UNK
     Route: 048

REACTIONS (4)
  - Nausea [Recovered/Resolved]
  - Weight decreased [Unknown]
  - Headache [Recovered/Resolved]
  - Wrong technique in product usage process [Unknown]
